FAERS Safety Report 8098735-5 (Version None)
Quarter: 2012Q1

REPORT INFORMATION
  Report Type: 
  Country: None (occurrence: None)
  Receive Date: 20120131
  Receipt Date: 20120125
  Transmission Date: 20120608
  Serious: Yes (Other)
  Sender: FDA-Public Use
  Company Number: US-PFIZER INC-2012021152

PATIENT
  Sex: Male
  Weight: 64.399 kg

DRUGS (1)
  1. BENEFIX [Suspect]
     Indication: FACTOR IX DEFICIENCY
     Dosage: 2000 UNITS, AS NEEDED
     Route: 058

REACTIONS (2)
  - HEPATITIS B [None]
  - RESTLESS LEGS SYNDROME [None]
